FAERS Safety Report 21798624 (Version 1)
Quarter: 2022Q4

REPORT INFORMATION
  Report Type: Spontaneous
  Country: TR (occurrence: TR)
  Receive Date: 20221230
  Receipt Date: 20221230
  Transmission Date: 20230113
  Serious: No
  Sender: FDA-Public Use
  Company Number: TR-ALKEM LABORATORIES LIMITED-DE-ALKEM-2022-10688

PATIENT
  Age: 1 Year
  Sex: Female

DRUGS (2)
  1. SIROLIMUS [Suspect]
     Active Substance: SIROLIMUS
     Indication: Macroglossia
     Dosage: 0.8 MILLIGRAM/SQ. METER, BID (TWICE A DAY )
     Route: 065
  2. SIROLIMUS [Suspect]
     Active Substance: SIROLIMUS
     Indication: Mastication disorder

REACTIONS (1)
  - Hypertriglyceridaemia [Unknown]
